FAERS Safety Report 7768593-4 (Version None)
Quarter: 2011Q3

REPORT INFORMATION
  Report Type: 
  Country: None (occurrence: None)
  Receive Date: 20110922
  Receipt Date: 20110613
  Transmission Date: 20111222
  Serious: No
  Sender: FDA-Public Use
  Company Number: US-ASTRAZENECA-2011SE36073

PATIENT
  Age: 37 Year
  Sex: Male

DRUGS (6)
  1. SEROQUEL [Suspect]
     Route: 048
  2. LISINOPRIL [Concomitant]
  3. NIACIN [Concomitant]
  4. SEROQUEL [Suspect]
     Indication: BIPOLAR DISORDER
     Route: 048
  5. BYSTOLIC [Concomitant]
  6. LAMICTAL [Concomitant]

REACTIONS (3)
  - WEIGHT INCREASED [None]
  - DRUG DEPENDENCE [None]
  - CARDIAC DISORDER [None]
